FAERS Safety Report 8289403-5 (Version None)
Quarter: 2012Q2

REPORT INFORMATION
  Report Type: 
  Country: None (occurrence: None)
  Receive Date: 20120417
  Receipt Date: 20120413
  Transmission Date: 20120825
  Serious: Yes (Other)
  Sender: FDA-Public Use
  Company Number: US-PFIZER INC-2012092780

PATIENT
  Sex: Male
  Weight: 77.098 kg

DRUGS (7)
  1. LAMICTAL [Concomitant]
     Dosage: 300 MG, 1X/DAY
  2. LIPITOR [Concomitant]
     Dosage: 20 MG, 1X/DAY
  3. TRILEPTAL [Concomitant]
     Dosage: 450 MG, DAILY
  4. LYRICA [Suspect]
     Indication: COMPLEX REGIONAL PAIN SYNDROME
     Dosage: 150 MG, 2X/DAY
  5. KLONOPIN [Concomitant]
     Dosage: 0.25 MG, 2X/DAY
  6. LYRICA [Suspect]
     Dosage: 100 MG, 2X/DAY
  7. NUCYNTA [Concomitant]
     Dosage: 50 MG, 4X/DAY

REACTIONS (2)
  - EYE PAIN [None]
  - WEIGHT INCREASED [None]
